FAERS Safety Report 7434726-2 (Version None)
Quarter: 2011Q2

REPORT INFORMATION
  Report Type: 
  Country: None (occurrence: None)
  Receive Date: 20110425
  Receipt Date: 20110421
  Transmission Date: 20111010
  Serious: Yes (Other)
  Sender: FDA-Public Use
  Company Number: AR-PFIZER INC-2011081195

PATIENT
  Age: 4 Year
  Sex: Male
  Weight: 20 kg

DRUGS (3)
  1. IBUPIRAC [Suspect]
     Indication: PYREXIA
     Dosage: 8 ML, SINGLE
     Route: 048
     Dates: start: 20110408, end: 20110408
  2. PARACETAMOL [Suspect]
     Dosage: UNK
     Dates: start: 20110408
  3. MONTELUKAST [Concomitant]
     Indication: BRONCHITIS CHRONIC
     Dosage: UNK

REACTIONS (1)
  - HYPOTHERMIA [None]
